FAERS Safety Report 17155786 (Version 1)
Quarter: 2019Q4

REPORT INFORMATION
  Report Type: Spontaneous
  Country: IT (occurrence: IT)
  Receive Date: 20191215
  Receipt Date: 20191215
  Transmission Date: 20200122
  Serious: Yes (Hospitalization, Other)
  Sender: FDA-Public Use
  Company Number: IT-SA-2019SA342283

PATIENT
  Age: 59 Year
  Sex: Male

DRUGS (2)
  1. ZOLPIDEM TARTRATE. [Suspect]
     Active Substance: ZOLPIDEM TARTRATE
     Dosage: 120 MG, TOTAL
     Route: 048
  2. ESCITALOPRAM OXALATE. [Suspect]
     Active Substance: ESCITALOPRAM OXALATE
     Dosage: 120 MG, TOTAL
     Route: 048

REACTIONS (3)
  - Intentional overdose [Unknown]
  - Poisoning deliberate [Unknown]
  - Sopor [Unknown]

NARRATIVE: CASE EVENT DATE: 20190531
